FAERS Safety Report 5382942-6 (Version None)
Quarter: 2007Q3

REPORT INFORMATION
  Report Type: 
  Country: None (occurrence: None)
  Receive Date: 20070705
  Receipt Date: 20070620
  Transmission Date: 20080115
  Serious: Yes (Other)
  Sender: FDA-Public Use
  Company Number: S07-FRA-02798-01

PATIENT
  Age: 80 Year
  Sex: Female

DRUGS (3)
  1. CITALOPRAM HYDROBROMIDE [Suspect]
     Dosage: 10 MG QD PO
     Route: 048
  2. ESIDRIX [Suspect]
     Indication: HYPERTENSION
  3. ACE INHIBITORS (NOS) [Concomitant]

REACTIONS (1)
  - HYPONATRAEMIA [None]
